FAERS Safety Report 8347524-2 (Version None)
Quarter: 2012Q2

REPORT INFORMATION
  Report Type: 
  Country: None (occurrence: None)
  Receive Date: 20120509
  Receipt Date: 20120430
  Transmission Date: 20120825
  Serious: Yes (Other)
  Sender: FDA-Public Use
  Company Number: GB-JNJFOC-20120211327

PATIENT
  Sex: Female

DRUGS (2)
  1. RISPERDAL CONSTA [Suspect]
     Indication: SCHIZOAFFECTIVE DISORDER
     Route: 030
     Dates: start: 20111129, end: 20120201
  2. ADCAL D3 [Concomitant]
     Indication: PRODUCT USED FOR UNKNOWN INDICATION
     Route: 065

REACTIONS (5)
  - BALANCE DISORDER [None]
  - INJECTION SITE PAIN [None]
  - URINARY INCONTINENCE [None]
  - INSOMNIA [None]
  - EMOTIONAL DISORDER [None]
